FAERS Safety Report 11145908 (Version 1)
Quarter: 2015Q2

REPORT INFORMATION
  Report Type: Spontaneous
  Country: US (occurrence: None)
  Receive Date: 20150527
  Receipt Date: 20150527
  Transmission Date: 20150821
  Serious: Yes (Other)
  Sender: FDA-Public Use
  Company Number: None

PATIENT
  Age: 61 Year
  Sex: Female
  Weight: 46.27 kg

DRUGS (7)
  1. ALBUTEROL. [Suspect]
     Active Substance: ALBUTEROL
     Indication: COUGH
     Dosage: 1 TSP
     Route: 048
     Dates: start: 20150523, end: 20150524
  2. DAILY VITAMINS [Concomitant]
  3. CALCIUM PILLS [Concomitant]
  4. FAMILY DOLLAR SINUS AND ALLERGY MEDICINE [Concomitant]
  5. ZINC [Concomitant]
     Active Substance: ZINC\ZINC CHLORIDE
  6. MUCINEX [Concomitant]
     Active Substance: GUAIFENESIN
  7. VITAMIN D [Concomitant]
     Active Substance: CHOLECALCIFEROL

REACTIONS (3)
  - Palpitations [None]
  - Heart rate increased [None]
  - Ear pain [None]

NARRATIVE: CASE EVENT DATE: 20150524
